FAERS Safety Report 16499972 (Version 4)
Quarter: 2022Q2

REPORT INFORMATION
  Report Type: Spontaneous
  Country: CA (occurrence: CA)
  Receive Date: 20190701
  Receipt Date: 20220622
  Transmission Date: 20220721
  Serious: Yes (Death, Other)
  Sender: FDA-Public Use
  Company Number: CA-009507513-1811CAN001793

PATIENT
  Age: 36 Year
  Sex: Male

DRUGS (8)
  1. TEMODAL [Suspect]
     Active Substance: TEMOZOLOMIDE
     Indication: Pancreatic neuroendocrine tumour metastatic
     Dosage: DOSAGE FORM: NOT SPECIFIED
     Route: 065
  2. TEMODAL [Suspect]
     Active Substance: TEMOZOLOMIDE
     Indication: Metastases to liver
     Dosage: DOSAGE FORM: NOT SPECIFIED
     Route: 065
  3. CAPECITABINE [Suspect]
     Active Substance: CAPECITABINE
     Indication: Pancreatic neuroendocrine tumour metastatic
     Dosage: DOSAGE FORM: NOT SPECIFIED
     Route: 048
  4. CAPECITABINE [Suspect]
     Active Substance: CAPECITABINE
     Indication: Metastases to liver
     Dosage: DOSAGE FORM: NOT SPECIFIED
     Route: 048
  5. AFINITOR [Suspect]
     Active Substance: EVEROLIMUS
     Indication: Pancreatic neuroendocrine tumour metastatic
     Route: 065
  6. AFINITOR [Suspect]
     Active Substance: EVEROLIMUS
     Indication: Metastases to liver
     Route: 065
  7. YTTRIUM CHLORIDE Y-90 [Suspect]
     Active Substance: YTTRIUM CHLORIDE Y-90
     Indication: Radioembolisation
     Route: 065
  8. YTTRIUM CHLORIDE Y-90 [Suspect]
     Active Substance: YTTRIUM CHLORIDE Y-90
     Route: 065

REACTIONS (3)
  - Malignant neoplasm progression [Fatal]
  - Metastases to liver [Fatal]
  - Product use in unapproved indication [Fatal]
